FAERS Safety Report 9120189 (Version 3)
Quarter: 2013Q1

REPORT INFORMATION
  Report Type: Spontaneous
  Country: IT (occurrence: IT)
  Receive Date: 20130226
  Receipt Date: 20130328
  Transmission Date: 20140127
  Serious: Yes (Other)
  Sender: FDA-Public Use
  Company Number: IT-PFIZER INC-2013064555

PATIENT
  Age: 59 Year
  Sex: Male

DRUGS (10)
  1. EFEXOR ER [Suspect]
     Indication: DEPRESSION
     Dosage: 75 MG, 2X/DAY
     Route: 048
  2. EFEXOR ER [Suspect]
     Dosage: 175 MG, DAILY
     Route: 048
  3. RYTMONORM [Concomitant]
     Indication: TACHYCARDIA
     Dosage: 300 MG, 2X/DAY
     Route: 048
  4. LOSAPREX [Concomitant]
     Indication: HYPERTENSION
     Dosage: 50 MG, 1X/DAY
     Route: 048
  5. AMPLITAL [Concomitant]
     Indication: ANTIBIOTIC PROPHYLAXIS
     Dosage: 1 DF, FOR 3 DAYS, MONTHLY
     Route: 048
  6. DIAGRAN MINERALE RAFFORZATO [Concomitant]
     Indication: NUTRITIONAL SUPPLEMENTATION
     Dosage: 1 DF, 1X/DAY
     Route: 048
  7. CALCITRIOL [Concomitant]
     Indication: OSTEOPOROSIS
     Dosage: 1 DF, 1X/DAY
     Route: 048
  8. RIOPAN [Concomitant]
     Indication: ANTACID THERAPY
     Dosage: 1 DF, 1X/DAY
     Route: 048
  9. DIOSMECTAL [Concomitant]
     Indication: GASTROOESOPHAGEAL REFLUX DISEASE
     Dosage: 1 DF, 1X/DAY
     Route: 048
  10. MESALAZINE [Concomitant]
     Dosage: UNK

REACTIONS (7)
  - Colon cancer [Unknown]
  - Diarrhoea [Unknown]
  - Functional gastrointestinal disorder [Unknown]
  - Gastrointestinal hypomotility [Unknown]
  - Malabsorption [Unknown]
  - Abdominal discomfort [Unknown]
  - Off label use [Recovered/Resolved]
